FAERS Safety Report 5005580-3 (Version None)
Quarter: 2006Q2

REPORT INFORMATION
  Report Type: 
  Country: None (occurrence: None)
  Receive Date: 20060512
  Receipt Date: 20060509
  Transmission Date: 20061013
  Serious: Yes (Other)
  Sender: FDA-Public Use
  Company Number: 2006S1000091

PATIENT
  Age: 18 Day
  Sex: Female

DRUGS (10)
  1. INOMAX [Suspect]
     Indication: LUNG DISORDER
     Dosage: 5 PPM;GAS CONT, INH
     Route: 055
     Dates: start: 20060416, end: 20060507
  2. INOMAX [Suspect]
     Indication: PROPHYLAXIS
     Dosage: 5 PPM;GAS CONT, INH
     Route: 055
     Dates: start: 20060416, end: 20060507
  3. AMPICILLIN SODIUM [Concomitant]
  4. CEFOTAXIME [Concomitant]
  5. AMINOPHYLLIN [Concomitant]
  6. INDOMETHACIN [Concomitant]
  7. FUROSEMIDE [Concomitant]
  8. VANCOMYCIN [Concomitant]
  9. FLUCONAZOLE [Concomitant]
  10. MEROPENEM [Concomitant]

REACTIONS (8)
  - ACIDOSIS [None]
  - INTRAVENTRICULAR HAEMORRHAGE [None]
  - NECROTISING ENTEROCOLITIS NEONATAL [None]
  - NEONATAL ASPIRATION [None]
  - OLIGURIA [None]
  - PATENT DUCTUS ARTERIOSUS [None]
  - PNEUMATOSIS INTESTINALIS [None]
  - SHOCK [None]
